FAERS Safety Report 15191805 (Version 1)
Quarter: 2018Q3

REPORT INFORMATION
  Report Type: Spontaneous
  Country: US (occurrence: US)
  Receive Date: 20180724
  Receipt Date: 20180724
  Transmission Date: 20181010
  Serious: No
  Sender: FDA-Public Use
  Company Number: US-TARO-2017TAR00718

PATIENT
  Sex: Female

DRUGS (1)
  1. FLUOCINONIDE OINTMENT USP 0.05% [Suspect]
     Active Substance: FLUOCINONIDE
     Indication: URTICARIA
     Dosage: DOT SIZE ONCE TO LEGS, ARES, FEET AND THIGHS
     Route: 061
     Dates: start: 20170824, end: 20170824

REACTIONS (3)
  - Burning sensation [Recovering/Resolving]
  - Erythema [Unknown]
  - Insomnia [Unknown]

NARRATIVE: CASE EVENT DATE: 20170824
